FAERS Safety Report 10711539 (Version 1)
Quarter: 2015Q1

REPORT INFORMATION
  Report Type: Spontaneous
  Country: GB (occurrence: GB)
  Receive Date: 20150114
  Receipt Date: 20150114
  Transmission Date: 20150721
  Serious: Yes (Other)
  Sender: FDA-Public Use
  Company Number: GB-009507513-1501GBR001355

PATIENT
  Age: 75 Year
  Sex: Female

DRUGS (3)
  1. INTERFERON NOS [Suspect]
     Active Substance: INTERFERON
     Indication: BLADDER CANCER STAGE I, WITH CANCER IN SITU
  2. BCG LIVE [Suspect]
     Active Substance: BACILLUS CALMETTE-GUERIN SUBSTRAIN TICE LIVE ANTIGEN
     Indication: BLADDER CANCER STAGE I, WITH CANCER IN SITU
     Dosage: SIX-DOSE COURSE OF BCG
     Route: 043
  3. BCG LIVE [Suspect]
     Active Substance: BACILLUS CALMETTE-GUERIN SUBSTRAIN TICE LIVE ANTIGEN
     Dosage: UNK
     Route: 043

REACTIONS (1)
  - Bladder cancer recurrent [Unknown]
